FAERS Safety Report 7331637-8 (Version None)
Quarter: 2011Q1

REPORT INFORMATION
  Report Type: 
  Country: None (occurrence: None)
  Receive Date: 20110228
  Receipt Date: 20110228
  Transmission Date: 20110831
  Serious: Yes (Hospitalization)
  Sender: FDA-Public Use
  Company Number: None

PATIENT
  Age: 62 Year
  Sex: Male
  Weight: 81 kg

DRUGS (1)
  1. ENOXAPARIN [Suspect]
     Indication: DEEP VEIN THROMBOSIS
     Dosage: 88 MG BID SQ
     Route: 058
     Dates: start: 20101209, end: 20110108

REACTIONS (6)
  - GASTRIC HAEMORRHAGE [None]
  - TUBULOINTERSTITIAL NEPHRITIS [None]
  - HAEMOGLOBIN DECREASED [None]
  - RETROPERITONEAL HAEMATOMA [None]
  - MULTI-ORGAN DISORDER [None]
  - THERAPEUTIC RESPONSE DECREASED [None]
